FAERS Safety Report 15998172 (Version 1)
Quarter: 2019Q1

REPORT INFORMATION
  Report Type: Spontaneous
  Country: DE (occurrence: DE)
  Receive Date: 20190223
  Receipt Date: 20190223
  Transmission Date: 20190418
  Serious: Yes (Congenital Anomaly)
  Sender: FDA-Public Use
  Company Number: DE-ACCORD-108565

PATIENT
  Age: 1 Day
  Sex: Male
  Weight: 3.38 kg

DRUGS (3)
  1. LEVETIRACETAM. [Suspect]
     Active Substance: LEVETIRACETAM
     Indication: EPILEPSY
     Dosage: 2000 (MG/D)/ INITIAL 1500 MG/D, DOSAGE INCREASE TO 2000 MG/D
     Route: 064
     Dates: start: 20170612, end: 20180129
  2. CARBAMAZEPINE. [Concomitant]
     Active Substance: CARBAMAZEPINE
     Indication: EPILEPSY
     Dosage: 800 (MG / D) / YEARS
     Route: 064
     Dates: start: 20170417, end: 20170612
  3. MIRTAZAPINE. [Concomitant]
     Active Substance: MIRTAZAPINE
     Indication: RESTLESSNESS
     Dosage: 15 (MG/D )
     Route: 064
     Dates: start: 20170425, end: 20170609

REACTIONS (4)
  - Polydactyly [Not Recovered/Not Resolved]
  - Cryptorchism [Unknown]
  - Foetal exposure during pregnancy [Unknown]
  - Pyelocaliectasis [Unknown]

NARRATIVE: CASE EVENT DATE: 20180129
